FAERS Safety Report 6733481-9 (Version None)
Quarter: 2010Q2

REPORT INFORMATION
  Report Type: 
  Country: None (occurrence: None)
  Receive Date: 20100520
  Receipt Date: 20100507
  Transmission Date: 20101027
  Serious: Yes (Other)
  Sender: FDA-Public Use
  Company Number: PHHY2010US30506

PATIENT
  Sex: Female

DRUGS (3)
  1. RECLAST [Suspect]
     Dosage: 5 MG, YEARLY
     Route: 042
     Dates: start: 20080101
  2. RECLAST [Suspect]
     Dosage: 5 MG, YEARLY
     Route: 042
     Dates: start: 20090925
  3. ACTONEL [Suspect]
     Dosage: UNK
     Dates: start: 20070101

REACTIONS (2)
  - FEELING ABNORMAL [None]
  - ORAL PAIN [None]
